FAERS Safety Report 14818334 (Version 1)
Quarter: 2018Q2

REPORT INFORMATION
  Report Type: Spontaneous
  Country: US (occurrence: US)
  Receive Date: 20180427
  Receipt Date: 20180427
  Transmission Date: 20180711
  Serious: No
  Sender: FDA-Public Use
  Company Number: US-009507513-1804USA010785

PATIENT
  Age: 16 Year
  Sex: Female
  Weight: 52.15 kg

DRUGS (1)
  1. NEXPLANON [Suspect]
     Active Substance: ETONOGESTREL
     Indication: DYSMENORRHOEA
     Dosage: 1 DF, 3 YEAR IMPLANT
     Route: 059
     Dates: start: 20170817

REACTIONS (4)
  - Nausea [Unknown]
  - Headache [Unknown]
  - Product use in unapproved indication [Unknown]
  - Cerebral cyst [Unknown]

NARRATIVE: CASE EVENT DATE: 20170817
